FAERS Safety Report 5698147-5 (Version None)
Quarter: 2008Q2

REPORT INFORMATION
  Report Type: 
  Country: None (occurrence: None)
  Receive Date: 20080408
  Receipt Date: 20080331
  Transmission Date: 20081010
  Serious: Yes (Other)
  Sender: FDA-Public Use
  Company Number: US-ELI_LILLY_AND_COMPANY-US200801003029

PATIENT
  Sex: Female

DRUGS (17)
  1. BYETTA [Suspect]
     Indication: TYPE 2 DIABETES MELLITUS
     Dosage: 5 UG, 2/D
     Route: 058
     Dates: start: 20050906, end: 20080108
  2. BYETTA [Suspect]
     Dosage: 10 UG, 2/D
     Route: 058
     Dates: start: 20080109, end: 20080128
  3. AMARYL [Concomitant]
     Indication: DIABETES MELLITUS
     Dosage: 2 MG, UNK
     Route: 048
  4. METFORMIN HCL [Concomitant]
     Indication: DIABETES MELLITUS
     Dosage: 500 MG, UNK
     Route: 048
  5. DILTIAZEM CD [Concomitant]
     Indication: BLOOD PRESSURE
     Dosage: 120 MG, UNK
     Route: 048
  6. PLAVIX [Concomitant]
     Indication: THROMBOSIS PROPHYLAXIS
     Dosage: 75 MG, UNK
     Route: 048
  7. ENALAPRIL HCT [Concomitant]
     Indication: BLOOD PRESSURE
     Dosage: UNK, UNK
     Route: 048
  8. EFFEXOR XR [Concomitant]
     Indication: DEPRESSION
     Dosage: 300 MG, UNK
     Route: 048
  9. MAGNESIUM OXIDE [Concomitant]
     Indication: BLOOD MAGNESIUM DECREASED
     Route: 048
  10. RISPERIDONE [Concomitant]
     Indication: ANXIETY
     Route: 048
  11. NEURONTIN [Concomitant]
     Dosage: 300 MG, UNK
     Route: 048
  12. CLONAZEPAM [Concomitant]
     Indication: RESTLESS LEGS SYNDROME
     Route: 048
  13. TRAZODIL [Concomitant]
     Indication: DEPRESSION
     Dosage: 100 MG, UNK
     Route: 048
  14. ZETIA [Concomitant]
     Indication: BLOOD CHOLESTEROL
     Route: 048
  15. LOVASTATIN [Concomitant]
     Indication: BLOOD CHOLESTEROL
     Dosage: 40 MG, UNK
  16. PREVACID [Concomitant]
     Indication: GASTROOESOPHAGEAL REFLUX DISEASE
     Dosage: 30 MG, UNK
     Route: 048
  17. POTASSIUM CHLORIDE [Concomitant]
     Indication: HYPOKALAEMIA
     Dosage: 10 MEQ, UNK
     Route: 048

REACTIONS (11)
  - BLOOD GLUCOSE DECREASED [None]
  - BLOOD GLUCOSE INCREASED [None]
  - CONFUSIONAL STATE [None]
  - DIZZINESS [None]
  - DRUG INEFFECTIVE [None]
  - DYSARTHRIA [None]
  - HEMIPARESIS [None]
  - HUNGER [None]
  - PHARMACEUTICAL PRODUCT COMPLAINT [None]
  - STRESS [None]
  - VOMITING [None]
